FAERS Safety Report 17237599 (Version 3)
Quarter: 2020Q4

REPORT INFORMATION
  Report Type: Report from Study
  Country: US (occurrence: US)
  Receive Date: 20200106
  Receipt Date: 20201103
  Transmission Date: 20210113
  Serious: Yes (Congenital Anomaly, Other)
  Sender: FDA-Public Use
  Company Number: US-MYLANLABS-2020M1001034

PATIENT
  Sex: Male
  Weight: 3.64 kg

DRUGS (9)
  1. ATAZANAVIR SULFATE. [Suspect]
     Active Substance: ATAZANAVIR SULFATE
     Indication: HIV INFECTION
     Dosage: 1 DOSAGE FORM
     Route: 064
     Dates: start: 20181212
  2. ZIDOVUDINE. [Suspect]
     Active Substance: ZIDOVUDINE
     Indication: PRODUCT USED FOR UNKNOWN INDICATION
     Dosage: 2 DOSAGE FORM
     Route: 064
  3. ZIDOVUDINE. [Suspect]
     Active Substance: ZIDOVUDINE
     Dosage: 1 DOSAGE FORM
     Route: 064
  4. RITONAVIR. [Suspect]
     Active Substance: RITONAVIR
     Indication: HIV INFECTION
     Dosage: 1 DOSAGE FORM
     Route: 064
     Dates: start: 20181212
  5. RETROVIR [Suspect]
     Active Substance: ZIDOVUDINE
     Dosage: DAILY DOSE OF 1 MG/KG/HR
     Route: 064
     Dates: start: 20190520, end: 20190520
  6. TENOFOVIR DISOPROXIL FUMARATE + EMTRICITABINE [Suspect]
     Active Substance: EMTRICITABINE\TENOFOVIR DISOPROXIL FUMARATE
     Dosage: 4 DOSAGE FORM
     Route: 064
     Dates: start: 20190410
  7. RETROVIR [Suspect]
     Active Substance: ZIDOVUDINE
     Indication: HIV INFECTION
     Dosage: DAILY DOSE OF 2 MG/KG/HR
     Route: 064
     Dates: start: 20190520, end: 20190520
  8. TENOFOVIR DISOPROXIL FUMARATE + EMTRICITABINE [Suspect]
     Active Substance: EMTRICITABINE\TENOFOVIR DISOPROXIL FUMARATE
     Indication: HIV INFECTION
     Dosage: 1 DOSAGE FORM, QD
     Route: 064
     Dates: start: 20181212, end: 20190410
  9. COCAINE [Suspect]
     Active Substance: COCAINE
     Indication: PRODUCT USED FOR UNKNOWN INDICATION
     Dosage: UNK
     Route: 064

REACTIONS (2)
  - Genitalia external ambiguous [Unknown]
  - Foetal exposure during pregnancy [Recovered/Resolved]
